FAERS Safety Report 8521382-5 (Version None)
Quarter: 2012Q3

REPORT INFORMATION
  Report Type: 
  Country: None (occurrence: None)
  Receive Date: 20120719
  Receipt Date: 20110614
  Transmission Date: 20120928
  Serious: No
  Sender: FDA-Public Use
  Company Number: US-BRISTOL-MYERS SQUIBB COMPANY-15810146

PATIENT
  Age: 53 Year
  Sex: Female

DRUGS (4)
  1. ULTRAM [Concomitant]
  2. SPRYCEL [Suspect]
     Dates: start: 20110301
  3. SIMETHICONE [Concomitant]
  4. ZOFRAN [Concomitant]

REACTIONS (1)
  - IMPAIRED HEALING [None]
